FAERS Safety Report 5775566-X (Version None)
Quarter: 2008Q2

REPORT INFORMATION
  Report Type: 
  Country: None (occurrence: None)
  Receive Date: 20080617
  Receipt Date: 20080606
  Transmission Date: 20081010
  Serious: Yes (Other)
  Sender: FDA-Public Use
  Company Number: US-JNJFOC-20080602094

PATIENT
  Age: 47 Year
  Sex: Male
  Weight: 73.48 kg

DRUGS (1)
  1. INVEGA [Suspect]
     Indication: AGGRESSION
     Route: 048

REACTIONS (3)
  - HEADACHE [None]
  - HEPATIC ENZYME INCREASED [None]
  - TREMOR [None]
